FAERS Safety Report 19352194 (Version 2)
Quarter: 2021Q3

REPORT INFORMATION
  Report Type: Report from Study
  Country: JP (occurrence: JP)
  Receive Date: 20210531
  Receipt Date: 20210915
  Transmission Date: 20211014
  Serious: Yes (Other)
  Sender: FDA-Public Use
  Company Number: JP-JNJFOC-20210558262

PATIENT
  Age: 82 Year
  Sex: Female
  Weight: 30 kg

DRUGS (1)
  1. SIRTURO [Suspect]
     Active Substance: BEDAQUILINE FUMARATE
     Indication: PULMONARY TUBERCULOSIS
     Route: 048
     Dates: start: 20200401

REACTIONS (3)
  - Diplopia [Unknown]
  - Hypothyroidism [Unknown]
  - Dysphagia [Unknown]
